FAERS Safety Report 8461632-7 (Version None)
Quarter: 2012Q2

REPORT INFORMATION
  Report Type: 
  Country: None (occurrence: None)
  Receive Date: 20120618
  Receipt Date: 20120606
  Transmission Date: 20120825
  Serious: Yes (Hospitalization)
  Sender: FDA-Public Use
  Company Number: JP-008634

PATIENT
  Age: 38 Year
  Sex: Female

DRUGS (2)
  1. GONADOTROPINS (GNRH ANTAGONIST) [Suspect]
     Indication: IN VITRO FERTILISATION
  2. MENOTROPHIN (HMG) [Suspect]
     Indication: IN VITRO FERTILISATION

REACTIONS (5)
  - PREGNANCY [None]
  - OVARIAN HYPERSTIMULATION SYNDROME [None]
  - OVARIAN TORSION [None]
  - MATERNAL EXPOSURE BEFORE PREGNANCY [None]
  - ABORTION MISSED [None]
